FAERS Safety Report 5216382-7 (Version None)
Quarter: 2006Q4

REPORT INFORMATION
  Report Type: 
  Country: None (occurrence: None)
  Receive Date: 20061124
  Receipt Date: 20060814
  Transmission Date: 20070319
  Serious: Yes (Hospitalization)
  Sender: FDA-Public Use
  Company Number: WAES 0608USA04111

PATIENT
  Sex: 0

DRUGS (1)
  1. VYTORIN [Suspect]
     Dosage: 10-80 MG/UNK/PO
     Route: 048

REACTIONS (1)
  - HOSPITALISATION [None]
